FAERS Safety Report 24354644 (Version 1)
Quarter: 2024Q3

REPORT INFORMATION
  Report Type: Spontaneous
  Country: US (occurrence: None)
  Receive Date: 20240923
  Receipt Date: 20240923
  Transmission Date: 20241016
  Serious: No
  Sender: Public
  Company Number: None

PATIENT
  Age: 81 Year
  Sex: Male
  Weight: 80.1 kg

DRUGS (1)
  1. DASATINIB [Suspect]
     Active Substance: DASATINIB
     Dosage: 70 MG DAILY ORAL ?
     Route: 048
     Dates: start: 20240920, end: 20240921

REACTIONS (5)
  - Fatigue [None]
  - Cough [None]
  - Gait disturbance [None]
  - Brain fog [None]
  - Impaired driving ability [None]

NARRATIVE: CASE EVENT DATE: 20240921
